FAERS Safety Report 20631953 (Version 1)
Quarter: 2022Q1

REPORT INFORMATION
  Report Type: Spontaneous
  Country: US (occurrence: None)
  Receive Date: 20220323
  Receipt Date: 20220323
  Transmission Date: 20220423
  Serious: Yes (Other)
  Sender: FDA-Public Use
  Company Number: None

PATIENT
  Age: 66 Year
  Sex: Female
  Weight: 104.33 kg

DRUGS (1)
  1. SEVOFLURANE [Suspect]
     Active Substance: SEVOFLURANE

REACTIONS (3)
  - Device leakage [None]
  - Incorrect dose administered [None]
  - Unwanted awareness during anaesthesia [None]

NARRATIVE: CASE EVENT DATE: 20220131
